FAERS Safety Report 4340129-X (Version None)
Quarter: 2004Q2

REPORT INFORMATION
  Report Type: 
  Country: None (occurrence: None)
  Receive Date: 20040416
  Receipt Date: 20040401
  Transmission Date: 20050107
  Serious: Yes (Death)
  Sender: FDA-Public Use
  Company Number: PHNR2004AU00832

PATIENT
  Sex: Male

DRUGS (1)
  1. SYNTOCINON [Suspect]
     Route: 064

REACTIONS (3)
  - CAESAREAN SECTION [None]
  - DEATH NEONATAL [None]
  - MATERNAL DRUGS AFFECTING FOETUS [None]
